FAERS Safety Report 25459837 (Version 1)
Quarter: 2025Q2

REPORT INFORMATION
  Report Type: Spontaneous
  Country: IT (occurrence: IT)
  Receive Date: 20250620
  Receipt Date: 20250620
  Transmission Date: 20250717
  Serious: Yes (Other)
  Sender: RANBAXY
  Company Number: IT-SUN PHARMACEUTICAL INDUSTRIES LTD-2025R1-512587

PATIENT
  Age: 26 Year
  Sex: Female

DRUGS (3)
  1. ASPIRIN [Suspect]
     Active Substance: ASPIRIN
     Indication: Univentricular heart
     Route: 065
  2. BISOPROLOL [Suspect]
     Active Substance: BISOPROLOL
     Indication: Univentricular heart
     Route: 065
  3. METOPROLOL [Suspect]
     Active Substance: METOPROLOL
     Indication: Univentricular heart
     Route: 065

REACTIONS (5)
  - Exposure during pregnancy [Unknown]
  - Ventricular septal defect [Unknown]
  - Ejection fraction decreased [Unknown]
  - Right ventricular dysfunction [Unknown]
  - Live birth [Unknown]
